FAERS Safety Report 22590355 (Version 1)
Quarter: 2023Q2

REPORT INFORMATION
  Report Type: Spontaneous
  Country: US (occurrence: None)
  Receive Date: 20230609
  Receipt Date: 20230609
  Transmission Date: 20230721
  Serious: No
  Sender: FDA-Public Use
  Company Number: None

PATIENT
  Sex: Female

DRUGS (14)
  1. IBRANCE [Suspect]
     Active Substance: PALBOCICLIB
     Indication: Breast cancer female
     Dosage: OTHER QUANTITY : 1T 21D ON/7D OFF;?FREQUENCY : DAILY;?
     Route: 048
     Dates: start: 20230405
  2. ATENOLOL [Concomitant]
     Active Substance: ATENOLOL
  3. CALCIUM CARBONATE [Concomitant]
     Active Substance: CALCIUM CARBONATE
  4. VITAMIN D3 [Concomitant]
     Active Substance: CHOLECALCIFEROL
  5. DICLOFENAC [Concomitant]
     Active Substance: DICLOFENAC
  6. VITAMINS [Concomitant]
     Active Substance: VITAMINS
  7. NARCAN [Concomitant]
     Active Substance: NALOXONE HYDROCHLORIDE
  8. ZOFRAN [Concomitant]
     Active Substance: ONDANSETRON HYDROCHLORIDE
  9. FULVESTRANT [Concomitant]
     Active Substance: FULVESTRANT
  10. OXYCODONE [Concomitant]
     Active Substance: OXYCODONE
  11. FENTANYL [Concomitant]
     Active Substance: FENTANYL
  12. LETROZOLE [Concomitant]
     Active Substance: LETROZOLE
  13. MELOXICAM [Concomitant]
     Active Substance: MELOXICAM
  14. HYDROCODONE [Concomitant]
     Active Substance: HYDROCODONE

REACTIONS (1)
  - Neutropenia [None]
